FAERS Safety Report 5480106-9 (Version None)
Quarter: 2007Q4

REPORT INFORMATION
  Report Type: 
  Country: None (occurrence: None)
  Receive Date: 20071009
  Receipt Date: 20071001
  Transmission Date: 20080405
  Serious: Yes (Other)
  Sender: FDA-Public Use
  Company Number: PHFR2007GB02861

PATIENT
  Sex: Male

DRUGS (2)
  1. OLANZAPINE [Concomitant]
     Indication: PSYCHOTIC DISORDER
     Dosage: 10MG/DAY
     Route: 065
  2. LAMISIL [Suspect]
     Indication: RASH
     Dosage: 250 MG, QD
     Route: 048
     Dates: end: 20070901

REACTIONS (3)
  - ASTHENIA [None]
  - DEPRESSED MOOD [None]
  - FATIGUE [None]
